FAERS Safety Report 8420941-8 (Version None)
Quarter: 2012Q2

REPORT INFORMATION
  Report Type: 
  Country: None (occurrence: None)
  Receive Date: 20120608
  Receipt Date: 20120531
  Transmission Date: 20120825
  Serious: Yes (Hospitalization)
  Sender: FDA-Public Use
  Company Number: US-BAYER-2012-006481

PATIENT
  Age: 34 Year
  Sex: Female
  Weight: 89.342 kg

DRUGS (7)
  1. ACYCLOVIR [Concomitant]
     Indication: ORAL HERPES
     Dosage: 200 MG, UNK
     Route: 048
     Dates: start: 20100214
  2. PERCOCET [Concomitant]
  3. DROSPIRENONE AND ETHINYL ESTRADIOL [Suspect]
     Indication: PREMENSTRUAL SYNDROME
     Dosage: UNK
     Dates: start: 20091201, end: 20100316
  4. YAZ [Suspect]
     Indication: PREMENSTRUAL SYNDROME
     Dosage: UNK
     Dates: start: 20070101
  5. YAZ [Suspect]
     Indication: POLYCYSTIC OVARIES
     Dosage: UNK
     Dates: start: 20090416, end: 20090515
  6. NEXIUM [Concomitant]
     Dosage: 40 MG, QD
     Route: 048
     Dates: start: 20100308
  7. COLACE [Concomitant]

REACTIONS (4)
  - DEEP VEIN THROMBOSIS [None]
  - PAIN [None]
  - INJURY [None]
  - PULMONARY EMBOLISM [None]
